FAERS Safety Report 9630710 (Version 2)
Quarter: 2014Q1

REPORT INFORMATION
  Report Type: Spontaneous
  Country: US (occurrence: None)
  Receive Date: 20131015
  Receipt Date: 20140310
  Transmission Date: 20141002
  Serious: Yes (Hospitalization)
  Sender: FDA-Public Use
  Company Number: 151774

PATIENT
  Age: 51 Year
  Sex: Female
  Weight: 87 kg

DRUGS (1)
  1. DAUNORUBICIN HYDROCHLORIDE [Suspect]
     Indication: ACUTE MYELOID LEUKAEMIA
     Dosage: CYCLIC, ONCE DAILY ON DAYS 1-3, IV BOLUS
     Route: 040
     Dates: start: 20130830, end: 20130901

REACTIONS (1)
  - Appendicitis [None]
